FAERS Safety Report 12181075 (Version 3)
Quarter: 2016Q2

REPORT INFORMATION
  Report Type: Spontaneous
  Country: GB (occurrence: GB)
  Receive Date: 20160315
  Receipt Date: 20160615
  Transmission Date: 20160815
  Serious: Yes (Death)
  Sender: FDA-Public Use
  Company Number: GB-JNJFOC-20160313293

PATIENT
  Age: 64 Year
  Sex: Male

DRUGS (2)
  1. IBRUTINIB [Suspect]
     Active Substance: IBRUTINIB
     Indication: CHRONIC LYMPHOCYTIC LEUKAEMIA
     Route: 048
     Dates: start: 20140813
  2. IBRUTINIB [Suspect]
     Active Substance: IBRUTINIB
     Indication: CHRONIC LYMPHOCYTIC LEUKAEMIA
     Dosage: CUMULATIVE DOSE 11625.8333
     Route: 048
     Dates: start: 20141106, end: 20160106

REACTIONS (8)
  - Epistaxis [Recovered/Resolved]
  - Chest wall haematoma [Unknown]
  - Cellulitis [Unknown]
  - Multiple organ dysfunction syndrome [Fatal]
  - Fall [Unknown]
  - Hepatic failure [Fatal]
  - Haematoma [Unknown]
  - Chills [Unknown]

NARRATIVE: CASE EVENT DATE: 20140815
